FAERS Safety Report 5662463-3 (Version None)
Quarter: 2008Q1

REPORT INFORMATION
  Report Type: 
  Country: None (occurrence: None)
  Receive Date: 20080313
  Receipt Date: 20080303
  Transmission Date: 20080703
  Serious: Yes (Other)
  Sender: FDA-Public Use
  Company Number: PHBS2007BR21502

PATIENT
  Sex: Male
  Weight: 85 kg

DRUGS (10)
  1. GALVUS MET [Suspect]
     Dosage: 100 MG VILDAGLIPTIN TABLETS
     Route: 048
     Dates: start: 20070901
  2. GALVUS MET [Suspect]
     Dosage: 1 TAB METFORMIN + 1 TAB VILDAGLIPTIN/DAY
  3. GALVUS MET [Suspect]
     Dosage: 50 MG, BID VILDAGLIPTIN
     Dates: start: 20080222
  4. GALVUS MET [Suspect]
     Dosage: 1 TAB METFORMIN + 1/2 TAB VILDAGLIPTIN/DAY
     Dates: start: 20080302
  5. SIMVASTATIN [Concomitant]
     Indication: BLOOD TRIGLYCERIDES ABNORMAL
     Dosage: 2 DF, UNK
     Route: 048
  6. ASPIRIN [Concomitant]
     Indication: HYPERTENSION
     Dosage: 1 DF, QD
     Route: 048
  7. GLIMEPIRIDE [Concomitant]
     Indication: DIABETES MELLITUS
     Dosage: 6 MG, QD
  8. GLIMEPIRIDE [Concomitant]
     Dosage: 6 MG, UNK
     Dates: start: 20080222
  9. ENALAPRIL MALEATE [Concomitant]
     Indication: HYPERTENSION
  10. RASILEZ [Concomitant]
     Indication: HYPERTENSION
     Dosage: 1 DF, QD
     Route: 048
     Dates: start: 20071101

REACTIONS (4)
  - DRUG INEFFECTIVE [None]
  - GLOMERULAR FILTRATION RATE INCREASED [None]
  - HYPERGLYCAEMIA [None]
  - RENAL DISORDER [None]
